FAERS Safety Report 9404725 (Version 2)
Quarter: 2013Q3

REPORT INFORMATION
  Report Type: Spontaneous
  Country: DE (occurrence: None)
  Receive Date: 20130703
  Receipt Date: 20130729
  Transmission Date: 20140515
  Serious: Yes (Hospitalization)
  Sender: FDA-Public Use
  Company Number: 2013036767

PATIENT
  Age: 15 Year
  Sex: Male

DRUGS (2)
  1. HAEMATE P [Suspect]
     Indication: VON WILLEBRAND^S DISEASE
     Dosage: (NOT OTHERWISE SPECIFIED)
     Route: 042
  2. HAEMATE P [Suspect]
     Indication: FACTOR VIII DEFICIENCY
     Dosage: (NOT OTHERWISE SPECIFIED)
     Route: 042

REACTIONS (1)
  - Uveitis [None]
